FAERS Safety Report 8224185-4 (Version None)
Quarter: 2012Q1

REPORT INFORMATION
  Report Type: 
  Country: None (occurrence: None)
  Receive Date: 20120321
  Receipt Date: 20120312
  Transmission Date: 20120608
  Serious: Yes (Hospitalization)
  Sender: FDA-Public Use
  Company Number: US-BRISTOL-MYERS SQUIBB COMPANY-16450132

PATIENT
  Age: 59 Year
  Sex: Male
  Weight: 45 kg

DRUGS (5)
  1. LORAZEPAM [Concomitant]
     Indication: HYPERTENSION
     Dates: start: 20111219
  2. LISINOPRIL [Concomitant]
     Indication: HYPERTENSION
     Dates: start: 20111220
  3. CISPLATIN [Suspect]
     Indication: LIP AND/OR ORAL CAVITY CANCER
     Dosage: 166MG
     Route: 042
     Dates: start: 20111220, end: 20120131
  4. OXYCODONE HCL [Concomitant]
     Indication: PAIN MANAGEMENT
     Dates: start: 20120113
  5. DEXAMETHASONE [Concomitant]
     Indication: NAUSEA
     Dates: start: 20111122

REACTIONS (2)
  - PNEUMONIA [None]
  - FAILURE TO THRIVE [None]
